FAERS Safety Report 9896428 (Version 2)
Quarter: 2014Q1

REPORT INFORMATION
  Report Type: Spontaneous
  Country: US (occurrence: US)
  Receive Date: 20140213
  Receipt Date: 20140213
  Transmission Date: 20141002
  Serious: No
  Sender: FDA-Public Use
  Company Number: US-BRISTOL-MYERS SQUIBB COMPANY-19888478

PATIENT
  Age: 52 Year
  Sex: Female
  Weight: 81.63 kg

DRUGS (1)
  1. ABATACEPT SUBQ INJECTION 125MG/ML [Suspect]
     Indication: RHEUMATOID ARTHRITIS
     Dosage: NO OF DOSES-2?04-DEC-2013?INTERRUPTED ON:20DEC2013
     Route: 058
     Dates: start: 20131126

REACTIONS (3)
  - Headache [Recovering/Resolving]
  - Furuncle [Unknown]
  - Oral herpes [Recovered/Resolved]
